FAERS Safety Report 22960354 (Version 2)
Quarter: 2023Q4

REPORT INFORMATION
  Report Type: Spontaneous
  Country: US (occurrence: US)
  Receive Date: 20230920
  Receipt Date: 20231213
  Transmission Date: 20240110
  Serious: No
  Sender: FDA-Public Use
  Company Number: US-REATA PHARMACEUTICALS INC.-2023USRTAOMA000016

PATIENT

DRUGS (5)
  1. SKYCLARYS [Suspect]
     Active Substance: OMAVELOXOLONE
     Indication: Friedreich^s ataxia
     Dosage: 150 MILLIGRAM, QD
     Route: 048
     Dates: start: 20230704
  2. SKYCLARYS [Suspect]
     Active Substance: OMAVELOXOLONE
     Dosage: 150 MILLIGRAM, QD
     Route: 048
     Dates: start: 20230710
  3. METOPROLOL [Concomitant]
     Active Substance: METOPROLOL
     Indication: Heart rate decreased
     Dosage: 25 MILLIGRAM, QD
     Route: 065
  4. MAGNESIUM [Concomitant]
     Active Substance: MAGNESIUM
     Indication: Heart rate decreased
     Dosage: UNK
     Route: 065
  5. FINASTERIDE [Concomitant]
     Active Substance: FINASTERIDE
     Indication: Alopecia
     Dosage: UNK
     Route: 065

REACTIONS (11)
  - Pain [Unknown]
  - Poor quality sleep [Unknown]
  - Dizziness [Unknown]
  - Blepharospasm [Unknown]
  - Vision blurred [Unknown]
  - Feeling hot [Unknown]
  - Influenza like illness [Unknown]
  - Myalgia [Unknown]
  - Headache [Unknown]
  - Aspartate aminotransferase increased [Unknown]
  - Alanine aminotransferase increased [Unknown]

NARRATIVE: CASE EVENT DATE: 20230725
